FAERS Safety Report 4600811-3 (Version None)
Quarter: 2005Q1

REPORT INFORMATION
  Report Type: 
  Country: None (occurrence: None)
  Receive Date: 20050304
  Receipt Date: 20050228
  Transmission Date: 20050727
  Serious: Yes (Disabling)
  Sender: FDA-Public Use
  Company Number: 2005038239

PATIENT
  Age: 60 Year
  Sex: Male

DRUGS (5)
  1. TORVAST (ATORVASTATIN) [Suspect]
     Indication: MYOCARDIAL ISCHAEMIA
     Dosage: 20 MG (20 MG, 1 IN 1 D) ORAL
     Route: 048
     Dates: start: 20040401, end: 20041115
  2. ALLOPURINOL [Concomitant]
  3. ASCRIPTIN (ACETYLSALICYLIC ACID, ALUMINIUM HYDROXIDE, MAGNESIUM HYDROX [Concomitant]
  4. LITHIUM CARBONATE [Concomitant]
  5. VENLAFAXINE HCL [Concomitant]

REACTIONS (1)
  - TENDON RUPTURE [None]
